FAERS Safety Report 26174387 (Version 1)
Quarter: 2025Q4

REPORT INFORMATION
  Report Type: Spontaneous
  Country: CN (occurrence: CN)
  Receive Date: 20251218
  Receipt Date: 20251218
  Transmission Date: 20260118
  Serious: Yes (Other)
  Sender: KYOWA
  Company Number: CN-KYOWAKIRIN-2025KK023972

PATIENT

DRUGS (1)
  1. FARESTON [Suspect]
     Active Substance: TOREMIFENE CITRATE
     Indication: Breast cancer
     Dosage: 60.0 MILLIGRAM(S) (60 MILLIGRAM(S), 1 IN 1 DAY)
     Route: 048
     Dates: start: 2022

REACTIONS (6)
  - Anaphylactic shock [Recovering/Resolving]
  - Hot flush [Recovering/Resolving]
  - Rash [Recovering/Resolving]
  - Rubella [Recovering/Resolving]
  - Urticaria [Recovering/Resolving]
  - Blood immunoglobulin E increased [Recovering/Resolving]

NARRATIVE: CASE EVENT DATE: 20251118
